FAERS Safety Report 7908101-8 (Version None)
Quarter: 2011Q4

REPORT INFORMATION
  Report Type: 
  Country: None (occurrence: None)
  Receive Date: 20111111
  Receipt Date: 20111107
  Transmission Date: 20120403
  Serious: Yes (Hospitalization)
  Sender: FDA-Public Use
  Company Number: US-BIOGENIDEC-2009BI034048

PATIENT
  Age: 61 Year
  Sex: Male

DRUGS (3)
  1. AVONEX [Suspect]
     Route: 030
     Dates: start: 20111105
  2. AVONEX [Suspect]
     Route: 030
     Dates: start: 20090202, end: 20110204
  3. AVONEX [Suspect]
     Indication: MULTIPLE SCLEROSIS
     Route: 030
     Dates: start: 20070717, end: 20080805

REACTIONS (6)
  - ABASIA [None]
  - ANAESTHETIC COMPLICATION PULMONARY [None]
  - DIABETES MELLITUS [None]
  - OVERWEIGHT [None]
  - MULTIPLE SCLEROSIS RELAPSE [None]
  - VISUAL IMPAIRMENT [None]
